FAERS Safety Report 12539999 (Version 1)
Quarter: 2016Q3

REPORT INFORMATION
  Report Type: Spontaneous
  Country: US (occurrence: US)
  Receive Date: 20160708
  Receipt Date: 20160708
  Transmission Date: 20161109
  Serious: Yes (Hospitalization, Other)
  Sender: FDA-Public Use
  Company Number: US-GLAXOSMITHKLINE-US2016GSK097573

PATIENT
  Age: 35 Year
  Sex: Female

DRUGS (1)
  1. BUPROPION. [Suspect]
     Active Substance: BUPROPION
     Dosage: 15 G, UNK
     Route: 048

REACTIONS (6)
  - Ventricular tachyarrhythmia [Unknown]
  - Cardiac arrest [Unknown]
  - Generalised tonic-clonic seizure [Unknown]
  - Overdose [Unknown]
  - Mental status changes [Unknown]
  - Hypotension [Unknown]
